FAERS Safety Report 6930279-3 (Version None)
Quarter: 2010Q3

REPORT INFORMATION
  Report Type: 
  Country: None (occurrence: None)
  Receive Date: 20100818
  Receipt Date: 20100727
  Transmission Date: 20110219
  Serious: No
  Sender: FDA-Public Use
  Company Number: US-BAYER-201029168NA

PATIENT
  Age: 28 Year
  Sex: Female
  Weight: 78 kg

DRUGS (1)
  1. MAGNEVIST [Suspect]
     Indication: NUCLEAR MAGNETIC RESONANCE IMAGING BRAIN
     Dosage: TOTAL DAILY DOSE: 16 ML  UNIT DOSE: 20 ML
     Route: 042
     Dates: start: 20100618, end: 20100618

REACTIONS (6)
  - DIZZINESS [None]
  - MALAISE [None]
  - NASAL CONGESTION [None]
  - RASH [None]
  - SNEEZING [None]
  - TONGUE DISORDER [None]
